FAERS Safety Report 4416761-1 (Version None)
Quarter: 2004Q3

REPORT INFORMATION
  Report Type: 
  Country: None (occurrence: None)
  Receive Date: 20040802
  Receipt Date: 20040719
  Transmission Date: 20050211
  Serious: Yes (Hospitalization)
  Sender: FDA-Public Use
  Company Number: GBWYE919021JUL04

PATIENT
  Age: 36 Year
  Sex: Male

DRUGS (11)
  1. RAPAMUNE [Suspect]
     Indication: IMMUNOSUPPRESSANT DRUG THERAPY
     Dosage: 5 MG 1X PER 1 DAY ORAL
     Route: 048
     Dates: start: 20040704, end: 20040717
  2. ZENAPAX [Concomitant]
  3. MYCOPHENOLATE MOFETIL (MYCOPHENOLATE MOFETIL) [Concomitant]
  4. PREDNISOLONE [Concomitant]
  5. OMEPRAZOLE [Concomitant]
  6. ALFACALCIDOL (AFACALCIDOL) [Concomitant]
  7. VALSARTAN (VALSARTAN) [Concomitant]
  8. DOXAZOSIN (DOXAZOSIN) [Concomitant]
  9. AMLODIPINE [Concomitant]
  10. ATENOLOL [Concomitant]
  11. CLONAZEPAM [Concomitant]

REACTIONS (3)
  - BLOOD CREATINE INCREASED [None]
  - KIDNEY TRANSPLANT REJECTION [None]
  - LABORATORY TEST ABNORMAL [None]
